FAERS Safety Report 7692753-4 (Version None)
Quarter: 2011Q3

REPORT INFORMATION
  Report Type: 
  Country: None (occurrence: None)
  Receive Date: 20110819
  Receipt Date: 20110808
  Transmission Date: 20111222
  Serious: Yes (Other)
  Sender: FDA-Public Use
  Company Number: AU-JNJFOC-20110805084

PATIENT
  Sex: Female
  Weight: 49 kg

DRUGS (1)
  1. DURAGESIC-100 [Suspect]
     Indication: PAIN
     Dosage: COMBINATION OF 12 AND 25 UG/HR PATCHES
     Route: 062
     Dates: start: 20060101

REACTIONS (4)
  - PRODUCT QUALITY ISSUE [None]
  - BREAKTHROUGH PAIN [None]
  - EMOTIONAL DISTRESS [None]
  - WRONG TECHNIQUE IN DRUG USAGE PROCESS [None]
